FAERS Safety Report 25787928 (Version 1)
Quarter: 2025Q3

REPORT INFORMATION
  Report Type: Spontaneous
  Country: JP (occurrence: JP)
  Receive Date: 20250910
  Receipt Date: 20250910
  Transmission Date: 20251020
  Serious: Yes (Disabling, Other)
  Sender: FERRING
  Company Number: JP-ferring-EVA202501393FERRINGPH

PATIENT

DRUGS (2)
  1. DINOPROSTONE [Suspect]
     Active Substance: DINOPROSTONE
     Indication: Labour induction
     Dosage: 1 DOSAGE FORM, ONCE/SINGLE
     Route: 064
  2. DINOPROSTONE [Concomitant]
     Active Substance: DINOPROSTONE
     Indication: Labour induction
     Route: 064

REACTIONS (7)
  - Hypoxic-ischaemic encephalopathy [Unknown]
  - Neonatal asphyxia [Unknown]
  - Bradycardia foetal [Recovered/Resolved with Sequelae]
  - Foetal heart rate deceleration abnormality [Recovered/Resolved with Sequelae]
  - Baseline foetal heart rate variability disorder [Recovered/Resolved with Sequelae]
  - Foetal heart rate deceleration abnormality [Recovered/Resolved with Sequelae]
  - Foetal heart rate deceleration abnormality [Recovered/Resolved with Sequelae]
